FAERS Safety Report 7012132-2 (Version None)
Quarter: 2010Q3

REPORT INFORMATION
  Report Type: 
  Country: None (occurrence: None)
  Receive Date: 20100910
  Receipt Date: 20100623
  Transmission Date: 20110219
  Serious: Yes (Other)
  Sender: FDA-Public Use
  Company Number: 1000014435

PATIENT
  Age: 51 Year
  Sex: Female

DRUGS (8)
  1. CELEXA [Suspect]
     Indication: DEPRESSION
     Dosage: 40 MG (40 MG, 1 IN 1 D),ORAL
     Route: 048
  2. METHOCARBAMOL (TABLETS) [Concomitant]
  3. HYDROCHLOROTHIAZIDE [Concomitant]
  4. PLAQUENIL [Concomitant]
  5. ASPIRIN [Concomitant]
  6. POTASSIUM [Concomitant]
  7. COENZYME Q10 [Concomitant]
  8. M.V.I. [Concomitant]

REACTIONS (3)
  - CHOLECYSTECTOMY [None]
  - ELECTROCARDIOGRAM QT PROLONGED [None]
  - H1N1 INFLUENZA [None]
